FAERS Safety Report 18796763 (Version 2)
Quarter: 2021Q2

REPORT INFORMATION
  Report Type: Spontaneous
  Country: US (occurrence: US)
  Receive Date: 20210128
  Receipt Date: 20210427
  Transmission Date: 20210717
  Serious: Yes (Other)
  Sender: FDA-Public Use
  Company Number: US-GILEAD-2021-0513451

PATIENT
  Sex: Male
  Weight: 70.3 kg

DRUGS (28)
  1. TRUVADA [Suspect]
     Active Substance: EMTRICITABINE\TENOFOVIR DISOPROXIL FUMARATE
     Dosage: UNK
     Route: 048
     Dates: start: 2004, end: 2010
  2. VIREAD [Suspect]
     Active Substance: TENOFOVIR DISOPROXIL FUMARATE
     Dosage: UNK
     Route: 048
     Dates: start: 2001, end: 2010
  3. FUZEON [Concomitant]
     Active Substance: ENFUVIRTIDE
  4. INTELENCE [Concomitant]
     Active Substance: ETRAVIRINE
  5. SUSTIVA [Concomitant]
     Active Substance: EFAVIRENZ
  6. VIRACEPT [Concomitant]
     Active Substance: NELFINAVIR MESYLATE
  7. AMLODIPINE [Concomitant]
     Active Substance: AMLODIPINE BESYLATE
  8. ENTECAVIR. [Concomitant]
     Active Substance: ENTECAVIR
  9. CALCIUM + VIT D [Concomitant]
     Active Substance: CALCIUM\VITAMIN D
  10. DESCOVY [Concomitant]
     Active Substance: EMTRICITABINE\TENOFOVIR ALAFENAMIDE FUMARATE
  11. PREZISTA [Concomitant]
     Active Substance: DARUNAVIR ETHANOLATE
  12. CRIXIVAN [Concomitant]
     Active Substance: INDINAVIR SULFATE
  13. EPIVIR [Concomitant]
     Active Substance: LAMIVUDINE
  14. CHLORTHALIDONE. [Concomitant]
     Active Substance: CHLORTHALIDONE
  15. ISENTRESS [Concomitant]
     Active Substance: RALTEGRAVIR POTASSIUM
  16. KALETRA [Concomitant]
     Active Substance: LOPINAVIR\RITONAVIR
  17. TIVICAY [Concomitant]
     Active Substance: DOLUTEGRAVIR SODIUM
  18. VIDEX [Concomitant]
     Active Substance: DIDANOSINE
  19. GABAPENTIN. [Concomitant]
     Active Substance: GABAPENTIN
  20. RETROVIR [Concomitant]
     Active Substance: ZIDOVUDINE
  21. CRESTOR [Concomitant]
     Active Substance: ROSUVASTATIN CALCIUM
  22. TRUVADA [Suspect]
     Active Substance: EMTRICITABINE\TENOFOVIR DISOPROXIL FUMARATE
     Indication: HIV INFECTION
     Dosage: UNK
     Route: 048
     Dates: start: 2005
  23. VIREAD [Suspect]
     Active Substance: TENOFOVIR DISOPROXIL FUMARATE
     Indication: HIV INFECTION
     Dosage: UNK
     Route: 048
     Dates: start: 2005
  24. NORVIR [Concomitant]
     Active Substance: RITONAVIR
  25. ZIAGEN [Concomitant]
     Active Substance: ABACAVIR SULFATE
  26. ZERIT [Concomitant]
     Active Substance: STAVUDINE
  27. ADEFOVIR [Concomitant]
     Active Substance: ADEFOVIR
  28. WELLBUTRIN [Concomitant]
     Active Substance: BUPROPION HYDROCHLORIDE

REACTIONS (8)
  - Anxiety [Not Recovered/Not Resolved]
  - Anhedonia [Not Recovered/Not Resolved]
  - Blood creatinine increased [Unknown]
  - Chronic kidney disease [Not Recovered/Not Resolved]
  - Osteoporosis [Unknown]
  - Renal injury [Unknown]
  - Pain [Not Recovered/Not Resolved]
  - Emotional distress [Not Recovered/Not Resolved]

NARRATIVE: CASE EVENT DATE: 2007
